FAERS Safety Report 7788245-4 (Version None)
Quarter: 2011Q3

REPORT INFORMATION
  Report Type: 
  Country: None (occurrence: None)
  Receive Date: 20110930
  Receipt Date: 20110919
  Transmission Date: 20111222
  Serious: Yes (Hospitalization, Other)
  Sender: FDA-Public Use
  Company Number: US-ELI_LILLY_AND_COMPANY-US201107002033

PATIENT
  Sex: Female

DRUGS (8)
  1. FORTEO [Suspect]
     Dosage: 20 UG, QD
     Route: 065
     Dates: end: 20110706
  2. ATENOLOL [Concomitant]
  3. COMBIVENT [Concomitant]
  4. FORTEO [Suspect]
     Dosage: 20 UG, QD
     Route: 065
     Dates: start: 20110916
  5. FLOVENT [Concomitant]
  6. FORTEO [Suspect]
     Indication: OSTEOPOROSIS
     Dosage: 20 UG, QD
     Route: 065
     Dates: start: 20110601
  7. DIOVAN [Concomitant]
  8. XANAX [Concomitant]
     Indication: SLEEP DISORDER
     Dosage: 0.5 MG, UNK

REACTIONS (12)
  - INSOMNIA [None]
  - VASCULAR INJURY [None]
  - RETCHING [None]
  - NAUSEA [None]
  - OESOPHAGEAL INJURY [None]
  - ASTHENIA [None]
  - COUGH [None]
  - DIZZINESS [None]
  - FATIGUE [None]
  - INTENTIONAL DRUG MISUSE [None]
  - BRONCHIECTASIS [None]
  - MALAISE [None]
